FAERS Safety Report 8536984-X (Version None)
Quarter: 2012Q3

REPORT INFORMATION
  Report Type: 
  Country: None (occurrence: None)
  Receive Date: 20120713
  Receipt Date: 20120706
  Transmission Date: 20120928
  Serious: No
  Sender: FDA-Public Use
  Company Number: DSA_56407_2012

PATIENT
  Sex: Female

DRUGS (6)
  1. KLONOPIN [Concomitant]
  2. PLAQUENIL [Concomitant]
  3. BACLOFEN [Concomitant]
  4. NEURONTIN [Concomitant]
  5. XENAZINE [Suspect]
     Indication: DYSTONIA
     Dosage: (12.5 MG BID ORAL), (12.5 MG BID ORAL)
     Route: 048
     Dates: start: 20120101
  6. XENAZINE [Suspect]
     Indication: DYSTONIA
     Dosage: (12.5 MG BID ORAL), (12.5 MG BID ORAL)
     Route: 048
     Dates: start: 20120101

REACTIONS (4)
  - FATIGUE [None]
  - INSOMNIA [None]
  - MIGRAINE [None]
  - MUSCULOSKELETAL STIFFNESS [None]
